FAERS Safety Report 7424026-9 (Version None)
Quarter: 2011Q2

REPORT INFORMATION
  Report Type: 
  Country: None (occurrence: None)
  Receive Date: 20110419
  Receipt Date: 20110406
  Transmission Date: 20111010
  Serious: Yes (Other)
  Sender: FDA-Public Use
  Company Number: CA-JNJFOC-20110403281

PATIENT
  Sex: Male
  Weight: 82.9 kg

DRUGS (16)
  1. HYDROCHLOROTHIAZIDE [Concomitant]
     Indication: DIURETIC THERAPY
  2. LANSOPRAZOLE [Concomitant]
  3. ALLOPURINOL [Concomitant]
     Indication: GOUT
  4. CHLOROQUINE PHOSPHATE [Concomitant]
     Indication: PROPHYLAXIS
  5. METHOTREXATE [Concomitant]
     Indication: PROPHYLAXIS
     Route: 058
  6. SULFASALAZINE [Concomitant]
     Indication: PROPHYLAXIS
     Dosage: EXCEPT ON THE DAY OF METHOTREXATE
  7. ALL OTHER THERAPEUTIC PRODUCTS [Concomitant]
     Indication: OSTEOPOROSIS
  8. CALCIUM W/VITAMIN D NOS [Concomitant]
     Indication: OSTEOPOROSIS
  9. FOLIC ACID [Concomitant]
     Indication: VITAMIN SUPPLEMENTATION
  10. REMICADE [Suspect]
     Indication: RHEUMATOID ARTHRITIS
     Route: 042
  11. REMICADE [Suspect]
     Route: 042
  12. POTASSIUM CHLORIDE [Concomitant]
     Dosage: 8 MEQ
  13. VITAMIN D [Concomitant]
     Indication: OSTEOPOROSIS
  14. CALCIUM W/MAGNESIUM [Concomitant]
     Indication: OSTEOPOROSIS
  15. HYDROCHLOROTHIAZIDE [Concomitant]
     Indication: BLOOD PRESSURE
  16. TRIDURAL [Concomitant]
     Indication: PAIN

REACTIONS (2)
  - VOMITING [None]
  - DIARRHOEA [None]
